FAERS Safety Report 23185467 (Version 1)
Quarter: 2023Q4

REPORT INFORMATION
  Report Type: Spontaneous
  Country: US (occurrence: None)
  Receive Date: 20231114
  Receipt Date: 20231114
  Transmission Date: 20240109
  Serious: Yes (unspecified)
  Sender: FDA-Public Use
  Company Number: None

PATIENT
  Age: 47 Year
  Sex: Male
  Weight: 148.5 kg

DRUGS (1)
  1. SERTRALINE [Suspect]
     Active Substance: SERTRALINE HYDROCHLORIDE
     Indication: Drug therapy
     Dosage: 1 TABLET ORAL?
     Route: 048
     Dates: start: 20231023

REACTIONS (2)
  - Aggression [None]
  - Therapy change [None]

NARRATIVE: CASE EVENT DATE: 20231104
